FAERS Safety Report 20998839 (Version 1)
Quarter: 2022Q2

REPORT INFORMATION
  Report Type: Spontaneous
  Country: MX (occurrence: MX)
  Receive Date: 20220623
  Receipt Date: 20220623
  Transmission Date: 20220720
  Serious: Yes (Hospitalization, Other)
  Sender: FDA-Public Use
  Company Number: MX-UCBSA-2022018496

PATIENT
  Sex: Male

DRUGS (4)
  1. BRIVIACT [Suspect]
     Active Substance: BRIVARACETAM
     Indication: Epilepsy
     Dosage: 25 MILLIGRAM (100MG, 0.25 TABLET), 2X/DAY (BID)
     Route: 048
     Dates: start: 20220315
  2. BRIVIACT [Suspect]
     Active Substance: BRIVARACETAM
     Indication: Petit mal epilepsy
  3. BRIVIACT [Suspect]
     Active Substance: BRIVARACETAM
     Indication: Temporal lobe epilepsy
  4. BRIVIACT [Suspect]
     Active Substance: BRIVARACETAM
     Indication: Off label use

REACTIONS (7)
  - Hospitalisation [Unknown]
  - Memory impairment [Recovering/Resolving]
  - Nystagmus [Unknown]
  - Muscle twitching [Unknown]
  - Therapeutic product effect incomplete [Unknown]
  - Product dispensing error [Unknown]
  - Off label use [Unknown]

NARRATIVE: CASE EVENT DATE: 20220101
